FAERS Safety Report 9983271 (Version 2)
Quarter: 2014Q1

REPORT INFORMATION
  Report Type: Spontaneous
  Country: DE (occurrence: DE)
  Receive Date: 20140307
  Receipt Date: 20140307
  Transmission Date: 20141002
  Serious: Yes (Disabling)
  Sender: FDA-Public Use
  Company Number: DE-ABBVIE-14P-062-1204785-00

PATIENT
  Age: 77 Year
  Sex: Male

DRUGS (2)
  1. TRENANTONE [Suspect]
     Indication: PROSTATE CANCER
     Route: 058
     Dates: start: 20020314, end: 20131108
  2. TRENANTONE [Suspect]
     Route: 058
     Dates: start: 20131126

REACTIONS (2)
  - Injection site extravasation [Unknown]
  - Injection site rash [Unknown]
